FAERS Safety Report 8081618-4 (Version None)
Quarter: 2012Q1

REPORT INFORMATION
  Report Type: 
  Country: None (occurrence: None)
  Receive Date: 20120130
  Receipt Date: 20120123
  Transmission Date: 20120608
  Serious: Yes (Other)
  Sender: FDA-Public Use
  Company Number: US-PFIZER INC-2011272416

PATIENT
  Sex: Female

DRUGS (2)
  1. DEPO-PROVERA [Suspect]
     Indication: CONTRACEPTION
     Dosage: UNK
  2. METHADONE [Concomitant]
     Dosage: UNK

REACTIONS (3)
  - GALACTORRHOEA [None]
  - LIVER FUNCTION TEST ABNORMAL [None]
  - ABDOMINAL DISTENSION [None]
